FAERS Safety Report 19048139 (Version 2)
Quarter: 2021Q3

REPORT INFORMATION
  Report Type: Spontaneous
  Country: US (occurrence: US)
  Receive Date: 20210324
  Receipt Date: 20210927
  Transmission Date: 20211014
  Serious: Yes (Other)
  Sender: FDA-Public Use
  Company Number: US-GILEAD-2021-0522309

PATIENT
  Age: 48 Year
  Sex: Male
  Weight: 68.93 kg

DRUGS (34)
  1. TRUVADA [Suspect]
     Active Substance: EMTRICITABINE\TENOFOVIR DISOPROXIL FUMARATE
     Indication: HIV INFECTION
     Dosage: UNK
     Route: 048
     Dates: start: 2004
  2. VIREAD [Suspect]
     Active Substance: TENOFOVIR DISOPROXIL FUMARATE
     Indication: HIV INFECTION
     Dosage: UNK
     Route: 048
     Dates: start: 200110, end: 200408
  3. DOXYCYCLINE MONOHYDRATE [Concomitant]
     Active Substance: DOXYCYCLINE
  4. BIKTARVY [Concomitant]
     Active Substance: BICTEGRAVIR SODIUM\EMTRICITABINE\TENOFOVIR ALAFENAMIDE FUMARATE
  5. DEXTROAMPHET SACCHARAT, AMPHET ASPARTATE, DEXTROAMPHET SULFATE AND AMPHET SULFAT [Concomitant]
     Active Substance: AMPHETAMINE ASPARTATE\AMPHETAMINE SULFATE\DEXTROAMPHETAMINE SACCHARATE\DEXTROAMPHETAMINE SULFATE
  6. DEXTROAMPHETAMINE [DEXAMFETAMINE] [Concomitant]
     Active Substance: DEXTROAMPHETAMINE
  7. CHANTIX [Concomitant]
     Active Substance: VARENICLINE TARTRATE
  8. PROAIR HFA [Concomitant]
     Active Substance: ALBUTEROL SULFATE
  9. SPIRIVA [Concomitant]
     Active Substance: TIOTROPIUM BROMIDE MONOHYDRATE
  10. EPIVIR [Concomitant]
     Active Substance: LAMIVUDINE
  11. IBUPROFEN. [Concomitant]
     Active Substance: IBUPROFEN
  12. LISINOPRIL. [Concomitant]
     Active Substance: LISINOPRIL
  13. XANAX [Concomitant]
     Active Substance: ALPRAZOLAM
  14. HYDROCODONE BITARTRATE AND ACETAMINOPHEN [Concomitant]
     Active Substance: ACETAMINOPHEN\HYDROCODONE BITARTRATE
  15. QVAR [Concomitant]
     Active Substance: BECLOMETHASONE DIPROPIONATE
  16. VENTOLIN HFA [Concomitant]
     Active Substance: ALBUTEROL SULFATE
  17. SUSTIVA [Concomitant]
     Active Substance: EFAVIRENZ
  18. FLONASE [Concomitant]
     Active Substance: FLUTICASONE PROPIONATE
  19. OXYCODONE [Concomitant]
     Active Substance: OXYCODONE
  20. GABAPENTIN. [Concomitant]
     Active Substance: GABAPENTIN
  21. KETOCONAZOLE. [Concomitant]
     Active Substance: KETOCONAZOLE
  22. NAPROXEN. [Concomitant]
     Active Substance: NAPROXEN
  23. TRUVADA [Suspect]
     Active Substance: EMTRICITABINE\TENOFOVIR DISOPROXIL FUMARATE
     Dosage: UNK
     Route: 048
     Dates: start: 200408, end: 201801
  24. GENVOYA [Concomitant]
     Active Substance: COBICISTAT\ELVITEGRAVIR\EMTRICITABINE\TENOFOVIR ALAFENAMIDE FUMARATE
  25. NORVIR [Concomitant]
     Active Substance: RITONAVIR
  26. BECONASE AQ [Concomitant]
     Active Substance: BECLOMETHASONE DIPROPIONATE MONOHYDRATE
  27. DICLOFENAC SODIUM. [Concomitant]
     Active Substance: DICLOFENAC SODIUM
  28. LAMIVUDINE. [Concomitant]
     Active Substance: LAMIVUDINE
  29. POLYETHYLENE GLYCOL [MACROGOL] [Concomitant]
     Active Substance: POLYETHYLENE GLYCOLS
  30. PROMETHAZINE DM [Concomitant]
     Active Substance: DEXTROMETHORPHAN HYDROBROMIDE\PROMETHAZINE HYDROCHLORIDE
  31. TRAMADOL. [Concomitant]
     Active Substance: TRAMADOL
  32. ZOLPIDEM [Concomitant]
     Active Substance: ZOLPIDEM TARTRATE
  33. LEXIVA [Concomitant]
     Active Substance: FOSAMPRENAVIR CALCIUM
  34. PRILOSEC [Concomitant]
     Active Substance: OMEPRAZOLE MAGNESIUM

REACTIONS (20)
  - Hand fracture [Recovered/Resolved]
  - Bone density decreased [Unknown]
  - Foot fracture [Recovered/Resolved]
  - Depression [Recovered/Resolved]
  - Osteoporosis [Not Recovered/Not Resolved]
  - Hand fracture [Recovered/Resolved]
  - Foot fracture [Recovered/Resolved]
  - Mobility decreased [Not Recovered/Not Resolved]
  - Anhedonia [Not Recovered/Not Resolved]
  - Anxiety [Recovered/Resolved]
  - Spinal compression fracture [Not Recovered/Not Resolved]
  - Emotional distress [Not Recovered/Not Resolved]
  - Foot fracture [Recovered/Resolved]
  - Ankle fracture [Recovered/Resolved]
  - Tibia fracture [Recovered/Resolved]
  - Foot fracture [Recovered/Resolved]
  - Pain [Not Recovered/Not Resolved]
  - Ankle fracture [Unknown]
  - Physical deconditioning [Not Recovered/Not Resolved]
  - Gait disturbance [Not Recovered/Not Resolved]

NARRATIVE: CASE EVENT DATE: 200208
